FAERS Safety Report 9614038 (Version 1)
Quarter: 2013Q4

REPORT INFORMATION
  Report Type: Spontaneous
  Country: US (occurrence: US)
  Receive Date: 20131011
  Receipt Date: 20131011
  Transmission Date: 20140711
  Serious: No
  Sender: FDA-Public Use
  Company Number: US-009507513-1310USA004001

PATIENT
  Sex: Male

DRUGS (1)
  1. DULERA [Suspect]
     Dosage: 2 DF, BID
     Route: 055

REACTIONS (3)
  - Underdose [Unknown]
  - Inappropriate schedule of drug administration [Unknown]
  - No adverse event [Unknown]
